FAERS Safety Report 6694584-0 (Version None)
Quarter: 2010Q2

REPORT INFORMATION
  Report Type: 
  Country: None (occurrence: None)
  Receive Date: 20100423
  Receipt Date: 20100419
  Transmission Date: 20101027
  Serious: Yes (Other)
  Sender: FDA-Public Use
  Company Number: US-JNJCH-2010009584

PATIENT
  Age: 20 Month
  Sex: Male

DRUGS (1)
  1. CHILDREN'S BENADRYL ALLERGY [Suspect]
     Indication: HYPERSENSITIVITY
     Dosage: TEXT:UNKNOWN
     Route: 048

REACTIONS (6)
  - CYANOSIS [None]
  - HYPERSENSITIVITY [None]
  - LIP SWELLING [None]
  - NAIL DISCOLOURATION [None]
  - OEDEMA PERIPHERAL [None]
  - WRONG DRUG ADMINISTERED [None]
